FAERS Safety Report 12971015 (Version 2)
Quarter: 2016Q4

REPORT INFORMATION
  Report Type: Spontaneous
  Country: US (occurrence: US)
  Receive Date: 20161123
  Receipt Date: 20161128
  Transmission Date: 20170207
  Serious: No
  Sender: FDA-Public Use
  Company Number: US-JAZZ-2016-US-018898

PATIENT
  Sex: Male

DRUGS (16)
  1. COLACE [Concomitant]
     Active Substance: DOCUSATE SODIUM
  2. VITAMIN C [Concomitant]
     Active Substance: ASCORBIC ACID
  3. ATIVAN [Concomitant]
     Active Substance: LORAZEPAM
  4. ZYRTEC [Concomitant]
     Active Substance: CETIRIZINE HYDROCHLORIDE
  5. SELENIUM SULFIDE. [Concomitant]
     Active Substance: SELENIUM SULFIDE
  6. VITAMIN D                          /00107901/ [Concomitant]
     Active Substance: ERGOCALCIFEROL
  7. XYREM [Suspect]
     Active Substance: SODIUM OXYBATE
     Dosage: 2.5 G, QD
     Route: 048
     Dates: start: 201511
  8. XYREM [Suspect]
     Active Substance: SODIUM OXYBATE
     Indication: CATAPLEXY
     Dosage: DOSE ADJUSTMENTS
     Route: 048
     Dates: start: 201401, end: 201511
  9. CLONAZEPAM. [Concomitant]
     Active Substance: CLONAZEPAM
  10. ABILIFY [Concomitant]
     Active Substance: ARIPIPRAZOLE
  11. MULTIVITAMINS                      /00116001/ [Concomitant]
  12. XYREM [Suspect]
     Active Substance: SODIUM OXYBATE
     Indication: NARCOLEPSY
     Dosage: 1.5 G, BID
     Route: 048
     Dates: start: 201312, end: 201401
  13. TRILEPTAL [Concomitant]
     Active Substance: OXCARBAZEPINE
  14. SENNA                              /00142201/ [Concomitant]
     Active Substance: SENNA LEAF
  15. HUMATROPE [Concomitant]
     Active Substance: SOMATROPIN
  16. RISPERDAL [Concomitant]
     Active Substance: RISPERIDONE

REACTIONS (3)
  - Communication disorder [Recovering/Resolving]
  - Condition aggravated [Recovering/Resolving]
  - Emotional disorder [Recovering/Resolving]
